FAERS Safety Report 8205338-8 (Version None)
Quarter: 2012Q1

REPORT INFORMATION
  Report Type: 
  Country: None (occurrence: None)
  Receive Date: 20120313
  Receipt Date: 20120302
  Transmission Date: 20120608
  Serious: Yes (Other)
  Sender: FDA-Public Use
  Company Number: CA-JNJFOC-20111205863

PATIENT
  Sex: Male
  Weight: 88.9 kg

DRUGS (6)
  1. ATENOLOL [Concomitant]
     Route: 065
  2. CHOLESTYRAMINE [Concomitant]
     Route: 065
  3. REMICADE [Suspect]
     Dosage: HAS HAD TOTAL OF 70 INFUSIONS
     Route: 042
  4. REMICADE [Suspect]
     Indication: CROHN'S DISEASE
     Dosage: HAS HAD 67 INFUSIONS
     Route: 042
  5. GEMFIBROZIL [Concomitant]
     Route: 065
  6. PENTASA [Concomitant]
     Route: 065

REACTIONS (3)
  - DYSPNOEA [None]
  - VASODILATATION [None]
  - HEART VALVE CALCIFICATION [None]
